FAERS Safety Report 6355100-6 (Version None)
Quarter: 2009Q3

REPORT INFORMATION
  Report Type: 
  Country: None (occurrence: None)
  Receive Date: 20090909
  Receipt Date: 20090826
  Transmission Date: 20100115
  Serious: No
  Sender: FDA-Public Use
  Company Number: 347799

PATIENT
  Age: 23 Year
  Sex: Male

DRUGS (5)
  1. ONDANSETRON [Suspect]
     Dosage: 4 MG, INTRAVENOUS
     Route: 042
     Dates: start: 20090805, end: 20090805
  2. FENTANYL [Concomitant]
  3. PROPOFOL [Concomitant]
  4. (HARTMANN'S SOLUTION) [Concomitant]
  5. HYDROCORTISONE [Concomitant]

REACTIONS (3)
  - CONVULSION [None]
  - HYPERSENSITIVITY [None]
  - LOSS OF CONSCIOUSNESS [None]
